FAERS Safety Report 7708663-X (Version None)
Quarter: 2011Q3

REPORT INFORMATION
  Report Type: 
  Country: None (occurrence: None)
  Receive Date: 20110819
  Receipt Date: 20110808
  Transmission Date: 20111222
  Serious: No
  Sender: FDA-Public Use
  Company Number: SPI201100218

PATIENT
  Age: 62 Year
  Sex: Female
  Weight: 104.3 kg

DRUGS (2)
  1. AMITIZA [Suspect]
     Indication: IRRITABLE BOWEL SYNDROME
     Dosage: 24 MCG, QD, ORAL
     Route: 048
     Dates: start: 20070101, end: 20070101
  2. PREDNISOLONE ACETATE [Concomitant]

REACTIONS (8)
  - OEDEMA PERIPHERAL [None]
  - ARTHRALGIA [None]
  - CHRONIC OBSTRUCTIVE PULMONARY DISEASE [None]
  - WEIGHT INCREASED [None]
  - DEAFNESS TRANSITORY [None]
  - CEREBROVASCULAR ACCIDENT [None]
  - DYSPNOEA [None]
  - EYE OEDEMA [None]
